FAERS Safety Report 7120175-3 (Version None)
Quarter: 2010Q4

REPORT INFORMATION
  Report Type: 
  Country: None (occurrence: None)
  Receive Date: 20101123
  Receipt Date: 20101115
  Transmission Date: 20110411
  Serious: Yes (Hospitalization)
  Sender: FDA-Public Use
  Company Number: CA-ABBOTT-10P-028-0681733-00

PATIENT
  Sex: Female
  Weight: 56 kg

DRUGS (5)
  1. MAVIK [Suspect]
     Indication: HYPERTENSION
     Dosage: 2 MG DAILY
     Dates: start: 20100722
  2. MAVIK [Suspect]
     Dosage: 4 MG
     Dates: start: 20101026
  3. LIPITOR [Concomitant]
     Indication: PRODUCT USED FOR UNKNOWN INDICATION
     Dosage: 20 MG
  4. ASPIRIN [Concomitant]
     Indication: PRODUCT USED FOR UNKNOWN INDICATION
  5. MOBICOX [Concomitant]
     Indication: PRODUCT USED FOR UNKNOWN INDICATION

REACTIONS (3)
  - ATRIAL FIBRILLATION [None]
  - CHEST DISCOMFORT [None]
  - PALPITATIONS [None]
